FAERS Safety Report 18383493 (Version 2)
Quarter: 2020Q4

REPORT INFORMATION
  Report Type: Report from Study
  Country: EG (occurrence: EG)
  Receive Date: 20201014
  Receipt Date: 20201027
  Transmission Date: 20210114
  Serious: Yes (Other)
  Sender: FDA-Public Use
  Company Number: NVSC2020EG273030

PATIENT
  Age: 4 Year
  Sex: Female
  Weight: 11 kg

DRUGS (2)
  1. MULTI VITAMIN [Concomitant]
     Active Substance: VITAMINS
     Indication: PRODUCT USED FOR UNKNOWN INDICATION
     Dosage: UNK
     Route: 065
  2. OMNITROPE [Suspect]
     Active Substance: SOMATROPIN
     Indication: GROWTH HORMONE DEFICIENCY
     Dosage: 0.6 MG, QD
     Route: 065
     Dates: start: 20190817

REACTIONS (6)
  - Pyrexia [Recovering/Resolving]
  - Gastroenteritis [Recovering/Resolving]
  - Product taste abnormal [Unknown]
  - Oropharyngeal pain [Recovering/Resolving]
  - Multiple use of single-use product [Not Recovered/Not Resolved]
  - Vomiting [Recovered/Resolved]

NARRATIVE: CASE EVENT DATE: 20200817
